FAERS Safety Report 4840430-7 (Version None)
Quarter: 2005Q4

REPORT INFORMATION
  Report Type: 
  Country: None (occurrence: None)
  Receive Date: 20051101
  Receipt Date: 20050901
  Transmission Date: 20060501
  Serious: No
  Sender: FDA-Public Use
  Company Number: MK200509-0053-1

PATIENT
  Age: 28 Year
  Sex: Female

DRUGS (9)
  1. NEUTROSPEC [Suspect]
     Indication: PELVIC INFLAMMATORY DISEASE
     Dosage: 18 MCI, ONE TIME, IV
     Route: 042
     Dates: start: 20050812, end: 20050812
  2. NEUTROSPEC [Suspect]
     Indication: PYREXIA
     Dosage: 18 MCI, ONE TIME, IV
     Route: 042
     Dates: start: 20050812, end: 20050812
  3. DILANTIN [Concomitant]
  4. CELEXA [Concomitant]
  5. UROQUID [Concomitant]
  6. VICODIN [Concomitant]
  7. LORCET-HD [Concomitant]
  8. COLACE [Concomitant]
  9. NITROFURANTOIN [Concomitant]

REACTIONS (3)
  - DISORIENTATION [None]
  - TACHYCARDIA [None]
  - VISUAL DISTURBANCE [None]
